FAERS Safety Report 15412676 (Version 1)
Quarter: 2018Q3

REPORT INFORMATION
  Report Type: Spontaneous
  Country: US (occurrence: US)
  Receive Date: 20180921
  Receipt Date: 20180921
  Transmission Date: 20181010
  Serious: Yes (Other)
  Sender: FDA-Public Use
  Company Number: PHHY2018US099666

PATIENT
  Age: 3 Year
  Sex: Male

DRUGS (2)
  1. TACROLIMUS. [Suspect]
     Active Substance: TACROLIMUS
     Indication: IMMUNOSUPPRESSANT DRUG THERAPY
     Dosage: 8 NG/ML, UNK
     Route: 065
  2. TACROLIMUS. [Suspect]
     Active Substance: TACROLIMUS
     Indication: LIVER TRANSPLANT
     Dosage: UNK
     Route: 065

REACTIONS (7)
  - Post transplant lymphoproliferative disorder [Recovered/Resolved]
  - Viraemia [Unknown]
  - Epstein-Barr viraemia [Unknown]
  - Metastases to spine [Recovering/Resolving]
  - Hepatitis [Unknown]
  - Metastases to bone [Recovering/Resolving]
  - Plasma cell myeloma [Recovering/Resolving]
